FAERS Safety Report 7068560-2 (Version None)
Quarter: 2010Q4

REPORT INFORMATION
  Report Type: 
  Country: None (occurrence: None)
  Receive Date: 20101028
  Receipt Date: 20100929
  Transmission Date: 20110411
  Serious: Yes (Other)
  Sender: FDA-Public Use
  Company Number: PHHY2010BR63466

PATIENT
  Sex: Female

DRUGS (2)
  1. EXFORGE HCT [Suspect]
     Indication: HYPERTENSION
     Dosage: 2 TABLETS ONCE A DAY
     Route: 048
     Dates: start: 20100908
  2. LEXOTAN [Concomitant]
     Indication: INSOMNIA
     Dosage: 1 TABLET EVERY 3-4 DAYS
     Route: 048

REACTIONS (7)
  - ACNE [None]
  - ERYTHEMA [None]
  - FEELING HOT [None]
  - HYPERHIDROSIS [None]
  - HYPERSENSITIVITY [None]
  - OOPHORECTOMY [None]
  - OVARIAN CYSTECTOMY [None]
